FAERS Safety Report 11488045 (Version 3)
Quarter: 2015Q3

REPORT INFORMATION
  Report Type: Spontaneous
  Country: JP (occurrence: None)
  Receive Date: 20150909
  Receipt Date: 20150921
  Transmission Date: 20151125
  Serious: Yes (Hospitalization, Other)
  Sender: FDA-Public Use
  Company Number: JP-MDT-ADR-2015-01737

PATIENT
  Age: 6 Year
  Sex: Female
  Weight: 13 kg

DRUGS (2)
  1. GABALON INTRATHECAL (0.2%) [Suspect]
     Active Substance: BACLOFEN
     Dosage: 250 MCG/DAY
  2. DIAPP SUPPOSITORIES [Suspect]
     Active Substance: DIAZEPAM
     Dosage: 4 MG/DAILY

REACTIONS (8)
  - Drug ineffective [None]
  - Device damage [None]
  - Device breakage [None]
  - Muscle tightness [None]
  - Device leakage [None]
  - No therapeutic response [None]
  - Myotonia [None]
  - Device malfunction [None]
